FAERS Safety Report 24172929 (Version 2)
Quarter: 2024Q3

REPORT INFORMATION
  Report Type: Spontaneous
  Country: JP (occurrence: JP)
  Receive Date: 20240805
  Receipt Date: 20240815
  Transmission Date: 20241016
  Serious: Yes (Hospitalization, Other)
  Sender: GILEAD
  Company Number: JP-GILEAD-2024-0682568

PATIENT
  Age: 76 Year
  Sex: Male

DRUGS (5)
  1. VEMLIDY [Suspect]
     Active Substance: TENOFOVIR ALAFENAMIDE FUMARATE
     Indication: Hepatitis B
     Dosage: 1 DOSAGE FORM, QD
     Route: 048
  2. ENTECAVIR [Concomitant]
     Active Substance: ENTECAVIR
     Indication: Hepatitis B
     Dosage: UNK
     Route: 048
  3. NITRAZEPAM [Concomitant]
     Active Substance: NITRAZEPAM
     Dosage: UNK
  4. ALFACALCIDOL [Concomitant]
     Active Substance: ALFACALCIDOL
     Dosage: UNK
  5. ESOMEPRAZOLE MAGNESIUM [Concomitant]
     Active Substance: ESOMEPRAZOLE MAGNESIUM
     Dosage: UNK

REACTIONS (2)
  - Hepatitis B [Unknown]
  - Treatment noncompliance [Unknown]
